FAERS Safety Report 6381550-8 (Version None)
Quarter: 2009Q3

REPORT INFORMATION
  Report Type: 
  Country: None (occurrence: None)
  Receive Date: 20090925
  Receipt Date: 20090824
  Transmission Date: 20100115
  Serious: Yes (Hospitalization)
  Sender: FDA-Public Use
  Company Number: F03200900102

PATIENT
  Age: 58 Year
  Sex: Male

DRUGS (5)
  1. FLUDARABINE PHOSPHATE [Suspect]
     Indication: CHRONIC LYMPHOCYTIC LEUKAEMIA
     Dosage: ORAL
     Route: 048
  2. CAMPATH [Suspect]
     Indication: CHRONIC LYMPHOCYTIC LEUKAEMIA
     Dosage: 30 MG 3/WEEK
     Route: 058
     Dates: start: 20041012, end: 20050211
  3. DIBONDRIN           (DIPHENHYDRAMINE HYDROCHLORIDE) [Concomitant]
  4. NEXALEN (PARACETAMOL) [Concomitant]
  5. LIDAPRIM (TRIMETHOPRIM/SULFATEMTROLE) [Concomitant]

REACTIONS (4)
  - HAEMOPTYSIS [None]
  - LUNG INFILTRATION [None]
  - PULMONARY TOXICITY [None]
  - PYREXIA [None]
